FAERS Safety Report 25205504 (Version 1)
Quarter: 2025Q2

REPORT INFORMATION
  Report Type: Spontaneous
  Country: IT (occurrence: IT)
  Receive Date: 20250417
  Receipt Date: 20250417
  Transmission Date: 20250717
  Serious: Yes (Death, Other)
  Sender: RANBAXY
  Company Number: IT-SUN PHARMACEUTICAL INDUSTRIES LTD-2025R1-503316

PATIENT
  Age: 65 Year
  Sex: Male

DRUGS (1)
  1. PREDNISONE [Suspect]
     Active Substance: PREDNISONE
     Indication: Graft versus host disease
     Dosage: 1 MILLIGRAM/KILOGRAM, QD
     Route: 065

REACTIONS (7)
  - Neurological decompensation [Fatal]
  - Condition aggravated [Fatal]
  - Blood pressure increased [Unknown]
  - Ecchymosis [Unknown]
  - Mood swings [Unknown]
  - Dermatitis [Unknown]
  - Fluid retention [Unknown]
